FAERS Safety Report 6744440-4 (Version None)
Quarter: 2010Q2

REPORT INFORMATION
  Report Type: 
  Country: None (occurrence: None)
  Receive Date: 20100527
  Receipt Date: 20100519
  Transmission Date: 20101027
  Serious: Yes (Disabling, Other)
  Sender: FDA-Public Use
  Company Number: AU-PFIZER INC-2010050621

PATIENT
  Age: 72 Year
  Sex: Female
  Weight: 58 kg

DRUGS (8)
  1. LIPITOR [Suspect]
     Indication: BLOOD CHOLESTEROL INCREASED
     Dosage: 40 MG, 1X/DAY
     Route: 048
     Dates: start: 20050101
  2. METHOTREXATE SODIUM [Suspect]
     Indication: POLYMYALGIA RHEUMATICA
     Dosage: 10 MG, WEEKLY
     Route: 048
     Dates: start: 20100401
  3. CORDILOX - SLOW RELEASE [Concomitant]
     Indication: BLOOD PRESSURE ABNORMAL
     Dosage: 180 MG, 1X/DAY
     Route: 048
     Dates: start: 20050101
  4. COUMADIN [Concomitant]
     Dosage: 5MG AND 1MG VARIABLE DOSE
     Route: 048
  5. PREDNISONE [Concomitant]
     Indication: ARTHRITIS
     Dosage: 5 MG, 2X/DAY
     Route: 048
     Dates: start: 20090101
  6. DIGOXIN [Concomitant]
     Indication: ARRHYTHMIA
     Dosage: 125 UG, 1X/DAY
     Route: 048
     Dates: start: 20050101
  7. RABEPRAZOLE [Concomitant]
     Indication: REFLUX OESOPHAGITIS
     Dosage: 20 MG, 1X/DAY
     Route: 048
  8. MODURETIC 5-50 [Concomitant]
     Dosage: 1 DOSE IN THE MORNING AS NEEDED
     Route: 048

REACTIONS (4)
  - DECREASED APPETITE [None]
  - NAUSEA [None]
  - POLYMYALGIA RHEUMATICA [None]
  - VOMITING [None]
